FAERS Safety Report 9052070 (Version 1)
Quarter: 2013Q1

REPORT INFORMATION
  Report Type: Spontaneous
  Country: IT (occurrence: IT)
  Receive Date: 20130206
  Receipt Date: 20130206
  Transmission Date: 20140127
  Serious: Yes (Hospitalization)
  Sender: FDA-Public Use
  Company Number: PHHY2013IT009556

PATIENT
  Sex: Female

DRUGS (14)
  1. TAREG [Suspect]
     Indication: HYPERTENSION
     Dosage: 1 DF, DAILY (160 MG)
     Route: 048
     Dates: start: 20120601, end: 20130109
  2. ALDACTONE [Suspect]
     Indication: HYPERTENSION
     Dosage: 1 DF, DAILY (100 MG)
     Route: 048
     Dates: start: 20120601, end: 20130109
  3. LANOXIN [Suspect]
     Indication: ARRHYTHMIA
     Dosage: 1 DF, DAILY (0.125 MG)
     Route: 048
     Dates: start: 20120601, end: 20130109
  4. KARVEA [Suspect]
     Indication: HYPERTENSION
     Dosage: 1 DF, DAILY (100 MG)
     Route: 048
     Dates: start: 20120601, end: 20130109
  5. LASIX [Concomitant]
     Dosage: 2 DF, UNK (25 MG)
     Route: 048
  6. LASIX [Concomitant]
     Dosage: 2 DF, UNK
     Route: 048
  7. LASIX [Concomitant]
     Route: 042
  8. LIBRADIN [Concomitant]
     Dosage: 1 DF, UNK
     Route: 048
  9. CONGESCOR [Concomitant]
     Dosage: 1 DF (1.25 MG)
     Route: 048
  10. SOLOSA [Concomitant]
     Dosage: 1 DF, (2 MG)
     Route: 048
  11. NITRODERM TTS [Concomitant]
     Dosage: 10 MG, PER DAY
     Route: 062
  12. DIBASE [Concomitant]
     Dosage: 20 DRP, UNK
     Route: 048
  13. NATECAL D3 [Concomitant]
     Dosage: 2 DF, (600 MG AND 400 UI)
     Route: 048
  14. ARIMIDEX [Concomitant]
     Dosage: 1 DF, (1 MG)
     Route: 048

REACTIONS (3)
  - Nodal arrhythmia [Recovering/Resolving]
  - Cardioactive drug level increased [Recovering/Resolving]
  - Renal failure acute [Recovering/Resolving]
